FAERS Safety Report 5592505-5 (Version None)
Quarter: 2008Q1

REPORT INFORMATION
  Report Type: 
  Country: None (occurrence: None)
  Receive Date: 20080115
  Receipt Date: 20080103
  Transmission Date: 20080703
  Serious: Yes (Other)
  Sender: FDA-Public Use
  Company Number: ES-PFIZER INC-2008001252

PATIENT

DRUGS (2)
  1. PHENYTOIN [Suspect]
  2. THERAPEUTIC RADIOPHARMACEUTICALS [Interacting]

REACTIONS (4)
  - BREAST CANCER [None]
  - DRUG INTERACTION [None]
  - METASTASES TO CENTRAL NERVOUS SYSTEM [None]
  - TOXIC EPIDERMAL NECROLYSIS [None]
